FAERS Safety Report 9344559 (Version 2)
Quarter: 2013Q3

REPORT INFORMATION
  Report Type: Spontaneous
  Country: FI (occurrence: FI)
  Receive Date: 20130612
  Receipt Date: 20130828
  Transmission Date: 20140515
  Serious: Yes (Disabling, Other)
  Sender: FDA-Public Use
  Company Number: FI-ABBOTT-13P-055-1102413-00

PATIENT
  Age: 49 Year
  Sex: Female
  Weight: 77 kg

DRUGS (10)
  1. HUMIRA [Suspect]
     Indication: JUVENILE IDIOPATHIC ARTHRITIS
     Dates: start: 2004, end: 2009
  2. HUMIRA [Suspect]
     Route: 058
     Dates: start: 20130102, end: 20130130
  3. HUMIRA [Suspect]
     Dosage: ONE INJECTION IN MAY
     Dates: start: 201305
  4. SANDIMMUN NEORAL [Concomitant]
     Indication: RENAL TRANSPLANT
     Route: 048
     Dates: start: 201102
  5. PREDNISON [Concomitant]
     Indication: RHEUMATIC DISORDER
     Route: 048
     Dates: start: 2000
  6. PREDNISON [Concomitant]
     Indication: RENAL TRANSPLANT
  7. GLUCOSAMIN ORION [Concomitant]
     Indication: OSTEOARTHRITIS
     Route: 048
  8. PRIMASPAN [Concomitant]
     Indication: PRODUCT USED FOR UNKNOWN INDICATION
     Route: 048
  9. NEXIUM [Concomitant]
     Indication: PRODUCT USED FOR UNKNOWN INDICATION
     Route: 048
  10. EMCONCOR [Concomitant]
     Indication: BLOOD PRESSURE
     Route: 048

REACTIONS (6)
  - Amyloidosis [Unknown]
  - Renal failure [Unknown]
  - Alopecia [Recovered/Resolved]
  - Alopecia [Recovered/Resolved]
  - Alopecia totalis [Recovered/Resolved]
  - Arthritis [Unknown]
